FAERS Safety Report 5242010-0 (Version None)
Quarter: 2007Q1

REPORT INFORMATION
  Report Type: 
  Country: None (occurrence: None)
  Receive Date: 20070220
  Receipt Date: 20070208
  Transmission Date: 20070707
  Serious: Yes (Death, Hospitalization, Other)
  Sender: FDA-Public Use
  Company Number: JP-PFIZER INC-2006150438

PATIENT
  Sex: Female
  Weight: 59.9 kg

DRUGS (9)
  1. ZYVOX [Suspect]
     Indication: STAPHYLOCOCCAL INFECTION
     Route: 042
     Dates: start: 20061122, end: 20061201
  2. GASTER [Suspect]
     Indication: GASTRIC ULCER
     Route: 042
     Dates: start: 20061125, end: 20061211
  3. MODACIN [Concomitant]
     Route: 042
     Dates: start: 20061122, end: 20061204
  4. DALACIN-S [Concomitant]
     Indication: PYOTHORAX
     Route: 042
     Dates: start: 20061114, end: 20061122
  5. CARBENIN [Concomitant]
     Route: 042
     Dates: start: 20061114, end: 20061122
  6. GABEXATE MESILATE [Concomitant]
     Route: 042
     Dates: start: 20061122, end: 20061204
  7. WAKOBITAL [Concomitant]
     Indication: CONVULSION
     Dates: start: 20061123, end: 20061215
  8. METRONIDAZOLE [Concomitant]
     Route: 048
     Dates: start: 20061125, end: 20061127
  9. BIOFERMIN R [Concomitant]
     Route: 048
     Dates: start: 20061125, end: 20061127

REACTIONS (4)
  - ANAEMIA [None]
  - DISSEMINATED INTRAVASCULAR COAGULATION [None]
  - PNEUMONIA [None]
  - THROMBOCYTOPENIA [None]
